FAERS Safety Report 8348721-2 (Version None)
Quarter: 2012Q2

REPORT INFORMATION
  Report Type: 
  Country: None (occurrence: None)
  Receive Date: 20120510
  Receipt Date: 20120509
  Transmission Date: 20120825
  Serious: No
  Sender: FDA-Public Use
  Company Number: US-PFIZER INC-2012113365

PATIENT
  Sex: Female

DRUGS (1)
  1. CHANTIX [Suspect]
     Dosage: UNK
     Dates: end: 20120504

REACTIONS (5)
  - CRYING [None]
  - AGGRESSION [None]
  - ABNORMAL BEHAVIOUR [None]
  - ANXIETY [None]
  - FEELING ABNORMAL [None]
